FAERS Safety Report 4766506-0 (Version None)
Quarter: 2005Q3

REPORT INFORMATION
  Report Type: 
  Country: None (occurrence: None)
  Receive Date: 20050909
  Receipt Date: 20050902
  Transmission Date: 20060218
  Serious: Yes (Other)
  Sender: FDA-Public Use
  Company Number: 200510555BNE

PATIENT
  Age: 26 Year
  Sex: Male

DRUGS (8)
  1. CIPROFLOXACIN [Suspect]
     Indication: LOWER RESPIRATORY TRACT INFECTION
     Dosage: 750 MG, BID
     Dates: start: 20050804
  2. DALTEPARIN [Concomitant]
  3. COMBIVENT [Concomitant]
  4. LINEZOLID [Concomitant]
  5. PARACETAMOL [Concomitant]
  6. DICLOFENAC [Concomitant]
  7. SENNA [Concomitant]
  8. LACTULOSE [Concomitant]

REACTIONS (2)
  - HYPERKALAEMIA [None]
  - HYPERNATRAEMIA [None]
